FAERS Safety Report 5023633-0 (Version None)
Quarter: 2006Q2

REPORT INFORMATION
  Report Type: 
  Country: None (occurrence: None)
  Receive Date: 20060606
  Receipt Date: 20060523
  Transmission Date: 20061013
  Serious: Yes (Life-Threatening, Hospitalization)
  Sender: FDA-Public Use
  Company Number: 225612

PATIENT
  Age: 81 Year
  Sex: Female
  Weight: 63 kg

DRUGS (11)
  1. AVASTIN [Suspect]
     Indication: COLON CANCER
     Dosage: SEE IMAGE
     Route: 042
     Dates: start: 20060216
  2. FLUOROURACIL [Concomitant]
  3. LEUCOVORIN CALCIUM [Concomitant]
  4. LANOXIN [Concomitant]
  5. ATENOLOL [Concomitant]
  6. KLONOPIN [Concomitant]
  7. LORTAB [Concomitant]
  8. PROTONIX [Concomitant]
  9. DECADRON SRC [Concomitant]
  10. ANZEMET [Concomitant]
  11. B12 COMPLEX (CYANOCOBALAMIN, VITAMIN B COMPLEX) [Concomitant]

REACTIONS (6)
  - ATRIAL THROMBOSIS [None]
  - DEHYDRATION [None]
  - DYSPNOEA [None]
  - GASTRITIS [None]
  - RENAL IMPAIRMENT [None]
  - VASCULAR OCCLUSION [None]
